FAERS Safety Report 8221569-5 (Version None)
Quarter: 2012Q1

REPORT INFORMATION
  Report Type: 
  Country: None (occurrence: None)
  Receive Date: 20120320
  Receipt Date: 20120312
  Transmission Date: 20120608
  Serious: Yes (Hospitalization)
  Sender: FDA-Public Use
  Company Number: US-ACTELION-A-US2011-56542

PATIENT

DRUGS (4)
  1. COUMADIN [Concomitant]
  2. ADCIRCA [Concomitant]
  3. TRACLEER [Suspect]
     Indication: PULMONARY ARTERIAL HYPERTENSION
     Dosage: UNK
     Route: 048
     Dates: start: 20021001
  4. CALCIUM CHANNEL BLOCKERS [Concomitant]

REACTIONS (5)
  - PAIN [None]
  - DYSPNOEA [None]
  - LUNG CARCINOMA CELL TYPE UNSPECIFIED STAGE IV [None]
  - HIGH FREQUENCY ABLATION [None]
  - PULMONARY OEDEMA [None]
